FAERS Safety Report 6208136-X (Version None)
Quarter: 2009Q2

REPORT INFORMATION
  Report Type: 
  Country: None (occurrence: None)
  Receive Date: 20090529
  Receipt Date: 20090525
  Transmission Date: 20091009
  Serious: Yes (Death, Hospitalization)
  Sender: FDA-Public Use
  Company Number: DE-ROCHE-634581

PATIENT
  Sex: Male
  Weight: 75 kg

DRUGS (1)
  1. CAPECITABINE [Suspect]
     Dosage: DOSE: 3500/3000 MG, FOR 14 IN 21 DAYS
     Route: 048
     Dates: start: 20080320, end: 20080710

REACTIONS (2)
  - FATIGUE [None]
  - NAUSEA [None]
